FAERS Safety Report 23245011 (Version 2)
Quarter: 2023Q4

REPORT INFORMATION
  Report Type: Spontaneous
  Country: US (occurrence: US)
  Receive Date: 20231130
  Receipt Date: 20231230
  Transmission Date: 20240109
  Serious: Yes (Death, Other)
  Sender: FDA-Public Use
  Company Number: US-SA-SAC00000000324068

PATIENT

DRUGS (1)
  1. RANITIDINE HYDROCHLORIDE [Suspect]
     Active Substance: RANITIDINE HYDROCHLORIDE
     Indication: Product used for unknown indication
     Dosage: DOSE DESCRIPTION : 150 MG
     Route: 065

REACTIONS (7)
  - Death [Fatal]
  - Neoplasm malignant [Unknown]
  - Hospitalisation [Unknown]
  - Injury [Unknown]
  - Physical disability [Unknown]
  - Anhedonia [Unknown]
  - Pain [Unknown]
